FAERS Safety Report 4333741-5 (Version None)
Quarter: 2004Q2

REPORT INFORMATION
  Report Type: 
  Country: None (occurrence: None)
  Receive Date: 20040402
  Receipt Date: 20040322
  Transmission Date: 20050107
  Serious: Yes (Hospitalization, Other)
  Sender: FDA-Public Use
  Company Number: US-JNJFOC-20031100824

PATIENT
  Age: 31 Year
  Sex: Male
  Weight: 89.4 kg

DRUGS (11)
  1. REMICADE [Suspect]
     Indication: CROHN'S DISEASE
     Dosage: 490 MG, INTRAVENOUS
     Route: 042
     Dates: start: 20010927, end: 20010927
  2. REMICADE [Suspect]
     Indication: CROHN'S DISEASE
     Dosage: 490 MG, INTRAVENOUS
     Route: 042
     Dates: start: 20010905
  3. REMICADE [Suspect]
     Indication: CROHN'S DISEASE
     Dosage: 490 MG, INTRAVENOUS
     Route: 042
     Dates: start: 20011005
  4. REMICADE [Suspect]
     Indication: CROHN'S DISEASE
     Dosage: 490 MG, INTRAVENOUS
     Route: 042
     Dates: start: 20011023
  5. EFFEXOR [Suspect]
     Indication: DRUG USE FOR UNKNOWN INDICATION
  6. PREDNISONE [Concomitant]
  7. PENTASA [Concomitant]
  8. LEVBID (HYOSCYAMINE SULFATE) [Concomitant]
  9. VICODIN [Concomitant]
  10. ACIPHEX [Concomitant]
  11. IMURAN [Concomitant]

REACTIONS (38)
  - ACTIVITIES OF DAILY LIVING IMPAIRED [None]
  - ALANINE AMINOTRANSFERASE INCREASED [None]
  - ANAEMIA [None]
  - ANHEDONIA [None]
  - BACTERIA URINE [None]
  - BAND NEUTROPHIL PERCENTAGE INCREASED [None]
  - BLOOD CREATININE DECREASED [None]
  - BLOOD GLUCOSE INCREASED [None]
  - BLOOD URINE [None]
  - CANDIDIASIS [None]
  - CONDITION AGGRAVATED [None]
  - CROHN'S DISEASE [None]
  - DEPRESSION [None]
  - DISSEMINATED TUBERCULOSIS [None]
  - DYSURIA [None]
  - EMOTIONAL DISTRESS [None]
  - FATIGUE [None]
  - HEADACHE [None]
  - INJURY [None]
  - LYMPHADENOPATHY [None]
  - LYMPHOCYTE PERCENTAGE DECREASED [None]
  - MICTURITION URGENCY [None]
  - MYCOBACTERIAL INFECTION [None]
  - NASAL CONGESTION [None]
  - NAUSEA [None]
  - NECK PAIN [None]
  - NEUTROPHIL PERCENTAGE INCREASED [None]
  - PAIN [None]
  - PHARYNGOLARYNGEAL PAIN [None]
  - POLLAKIURIA [None]
  - POST PROCEDURAL PAIN [None]
  - RED BLOOD CELL SEDIMENTATION RATE INCREASED [None]
  - SPLENOMEGALY [None]
  - SYNCOPE [None]
  - UPPER RESPIRATORY TRACT INFECTION [None]
  - VITAMIN B COMPLEX DEFICIENCY [None]
  - WEIGHT DECREASED [None]
  - WHITE BLOOD CELL COUNT INCREASED [None]
